FAERS Safety Report 6980248-2 (Version None)
Quarter: 2010Q3

REPORT INFORMATION
  Report Type: 
  Country: None (occurrence: None)
  Receive Date: 20100908
  Receipt Date: 20100907
  Transmission Date: 20110219
  Serious: Yes (Other)
  Sender: FDA-Public Use
  Company Number: WAES 1008USA03517

PATIENT
  Age: 72 Year
  Sex: Male

DRUGS (10)
  1. ZOCOR [Suspect]
     Indication: ACUTE CORONARY SYNDROME
     Dosage: 40 MG/DAILY/PO
     Route: 048
     Dates: start: 20080104, end: 20100725
  2. PLACEBO (UNSPECIFIED) [Suspect]
     Indication: ACUTE CORONARY SYNDROME
     Dosage: PO
     Route: 048
     Dates: start: 20080104, end: 20100725
  3. PLACEBO (UNSPECIFIED) [Suspect]
     Indication: ACUTE CORONARY SYNDROME
     Dosage: PO
     Route: 048
     Dates: start: 20080104, end: 20100725
  4. IMDUR [Concomitant]
  5. ACETAMINOPHEN [Concomitant]
  6. ACETAMINOPHEN (+) DIHYDROCODEINE BITARTR [Concomitant]
  7. ASPIRIN [Concomitant]
  8. BISOPROLOL [Concomitant]
  9. CANDESARTAN CILEXETIL [Concomitant]
  10. LANSOPRAZOLE [Concomitant]

REACTIONS (1)
  - PROSTATE CANCER [None]
